FAERS Safety Report 19506086 (Version 1)
Quarter: 2021Q3

REPORT INFORMATION
  Report Type: Report from Study
  Country: FR (occurrence: FR)
  Receive Date: 20210708
  Receipt Date: 20210708
  Transmission Date: 20211014
  Serious: Yes (Hospitalization, Other)
  Sender: FDA-Public Use
  Company Number: FR-SNT-000140

PATIENT
  Age: 23 Year
  Sex: Male

DRUGS (2)
  1. POSACONAZOLE [Suspect]
     Active Substance: POSACONAZOLE
     Indication: PRODUCT USE IN UNAPPROVED INDICATION
     Route: 048
  2. AMPHOTERICIN B/AMPHOTERICIN B/LIPOSOME [Suspect]
     Active Substance: AMPHOTERICIN B
     Indication: MUCORMYCOSIS
     Route: 065

REACTIONS (2)
  - Fusarium infection [Recovered/Resolved]
  - Product use in unapproved indication [Unknown]
